FAERS Safety Report 8233367-7 (Version None)
Quarter: 2012Q1

REPORT INFORMATION
  Report Type: 
  Country: None (occurrence: None)
  Receive Date: 20120323
  Receipt Date: 20120323
  Transmission Date: 20120608
  Serious: Yes (Death)
  Sender: FDA-Public Use
  Company Number: None

PATIENT
  Age: 48 Year
  Sex: Female

DRUGS (1)
  1. REVATIO [Suspect]

REACTIONS (7)
  - AGITATION [None]
  - NAUSEA [None]
  - CARDIAC ARREST [None]
  - CHEST PAIN [None]
  - HYPOTENSION [None]
  - GRUNTING [None]
  - MENTAL STATUS CHANGES [None]
